FAERS Safety Report 8216957-7 (Version None)
Quarter: 2012Q1

REPORT INFORMATION
  Report Type: 
  Country: None (occurrence: None)
  Receive Date: 20120319
  Receipt Date: 20120305
  Transmission Date: 20120608
  Serious: Yes (Death)
  Sender: FDA-Public Use
  Company Number: GB-BRISTOL-MYERS SQUIBB COMPANY-16459463

PATIENT

DRUGS (4)
  1. METFORMIN HCL [Suspect]
     Route: 064
  2. ENOXAPARIN [Concomitant]
     Route: 064
  3. ASPIRIN [Concomitant]
     Route: 064
  4. INSULIN [Suspect]
     Route: 064

REACTIONS (1)
  - FOETAL DEATH [None]
